FAERS Safety Report 23547829 (Version 1)
Quarter: 2024Q1

REPORT INFORMATION
  Report Type: Spontaneous
  Country: GB (occurrence: GB)
  Receive Date: 20240221
  Receipt Date: 20240221
  Transmission Date: 20240410
  Serious: Yes (Other)
  Sender: FDA-Public Use
  Company Number: None

PATIENT
  Age: 71 Year
  Sex: Female
  Weight: 82 kg

DRUGS (17)
  1. EMPAGLIFLOZIN [Suspect]
     Active Substance: EMPAGLIFLOZIN
     Indication: Product used for unknown indication
     Dates: start: 20230706
  2. QVAR [Concomitant]
     Active Substance: BECLOMETHASONE DIPROPIONATE
     Indication: Product used for unknown indication
     Dosage: PUFFS TO HELP PREVENT B...
     Route: 055
     Dates: start: 20230307
  3. BETNOVATE [Concomitant]
     Active Substance: BETAMETHASONE
     Indication: Product used for unknown indication
     Dosage: APPLY THINLY AS DIRECTED
     Dates: start: 20230307
  4. COAL TAR\COCONUT OIL\SALICYLIC ACID [Concomitant]
     Active Substance: COAL TAR\COCONUT OIL\SALICYLIC ACID
     Indication: Product used for unknown indication
     Dosage: USE DAILY
     Dates: start: 20230307
  5. EXOREX [Concomitant]
     Active Substance: COAL TAR
     Indication: Product used for unknown indication
     Dosage: APPLY 2-3 TIMES/DAY
     Dates: start: 20230307
  6. FINACEA [Concomitant]
     Active Substance: AZELAIC ACID
     Indication: Product used for unknown indication
     Dates: start: 20230307
  7. FLUTICASONE PROPIONATE [Concomitant]
     Active Substance: FLUTICASONE PROPIONATE
     Indication: Product used for unknown indication
     Dosage: PUFFS
     Route: 055
     Dates: start: 20230307
  8. ALBUTEROL [Concomitant]
     Active Substance: ALBUTEROL
     Indication: Product used for unknown indication
     Dosage: ONE TO TWO PUFFS UP TO FOUR TIMES A DAY ...
     Route: 055
     Dates: start: 20230307
  9. ZEROBASE [Concomitant]
     Indication: Dry skin prophylaxis
     Dates: start: 20230307
  10. BENDROFLUMETHIAZIDE [Concomitant]
     Active Substance: BENDROFLUMETHIAZIDE
     Dosage: EACH MORNING
     Dates: start: 20230307
  11. CARBOCYSTEINE [Concomitant]
     Active Substance: CARBOCYSTEINE
     Indication: Product used for unknown indication
     Dosage: ONE TO TWO CAPSULES TO BE TAKEN AT NIGHT
     Dates: start: 20230307
  12. CYANOCOBALAMIN [Concomitant]
     Active Substance: CYANOCOBALAMIN
     Indication: Product used for unknown indication
     Dosage: AS DIRECTED BY HAEM...
     Dates: start: 20231205
  13. DOXYCYCLINE [Concomitant]
     Active Substance: DOXYCYCLINE
     Indication: Product used for unknown indication
     Dosage: TWO THE FIRST DAY THEN ONE CAPSULE DAILY.
     Dates: start: 20231206, end: 20231220
  14. FEXOFENADINE [Concomitant]
     Active Substance: FEXOFENADINE HYDROCHLORIDE
     Indication: Product used for unknown indication
     Dates: start: 20230921
  15. GLICLAZIDE [Concomitant]
     Active Substance: GLICLAZIDE
     Indication: Product used for unknown indication
     Dosage: BEFORE FOOD.
     Dates: start: 20240110, end: 20240207
  16. METFORMIN [Concomitant]
     Active Substance: METFORMIN HYDROCHLORIDE
     Indication: Product used for unknown indication
     Dosage: TWO WITH BREAKFAST AND TWO TABLETS WITH...
     Dates: start: 20230620
  17. OMEPRAZOLE [Concomitant]
     Active Substance: OMEPRAZOLE
     Indication: Product used for unknown indication
     Dosage: TO HELP PREVENT IN...
     Dates: start: 20230307

REACTIONS (1)
  - Pruritus [Unknown]
